FAERS Safety Report 6143177-2 (Version None)
Quarter: 2009Q2

REPORT INFORMATION
  Report Type: 
  Country: None (occurrence: None)
  Receive Date: 20090403
  Receipt Date: 20090327
  Transmission Date: 20091009
  Serious: Yes (Hospitalization)
  Sender: FDA-Public Use
  Company Number: US-ASTRAZENECA-2009UW04770

PATIENT
  Age: 22328 Day
  Sex: Female

DRUGS (3)
  1. NEXIUM [Suspect]
     Indication: DYSPEPSIA
     Route: 048
     Dates: start: 20090214, end: 20090219
  2. NEXIUM [Suspect]
     Indication: THROAT IRRITATION
     Route: 048
     Dates: start: 20090214, end: 20090219
  3. NEXIUM [Suspect]
     Route: 048
     Dates: start: 20090214, end: 20090219

REACTIONS (6)
  - DRUG INEFFECTIVE [None]
  - DYSPEPSIA [None]
  - FEELING HOT [None]
  - PARAESTHESIA ORAL [None]
  - THROAT IRRITATION [None]
  - URTICARIA [None]
